FAERS Safety Report 6102284-0 (Version None)
Quarter: 2009Q1

REPORT INFORMATION
  Report Type: 
  Country: None (occurrence: None)
  Receive Date: 20090304
  Receipt Date: 20090225
  Transmission Date: 20090719
  Serious: Yes (Other)
  Sender: FDA-Public Use
  Company Number: US-WYE-H08365909

PATIENT
  Sex: Male
  Weight: 79.45 kg

DRUGS (1)
  1. TORISEL [Suspect]
     Indication: RENAL CELL CARCINOMA
     Route: 042
     Dates: start: 20090101, end: 20090211

REACTIONS (4)
  - ASTHENIA [None]
  - RASH [None]
  - SKIN ULCER [None]
  - STAPHYLOCOCCAL INFECTION [None]
